FAERS Safety Report 8905427 (Version 1)
Quarter: 2012Q4

REPORT INFORMATION
  Report Type: 
  Country: US (occurrence: US)
  Receive Date: 20121112
  Receipt Date: 20121112
  Transmission Date: 20130627
  Serious: No
  Sender: FDA-Public Use
  Company Number: US-VERTEX PHARMACEUTICAL INC.-AE-2012-000099

PATIENT
  Age: 45 Year
  Sex: Female
  Weight: 117 kg

DRUGS (6)
  1. INCIVEK [Suspect]
     Indication: HEPATITIS C
     Dosage: 750 mg, tid
     Route: 048
     Dates: start: 20111111, end: 201202
  2. PEGASYS [Suspect]
     Indication: HEPATITIS C
     Dosage: 180 ?g, qw
     Route: 058
     Dates: start: 20111111
  3. RIBAVIRIN [Suspect]
     Indication: HEPATITIS C
     Dosage: 600 mg AM, 400 mg PM
     Route: 048
     Dates: start: 20111111
  4. METFORMIN [Concomitant]
     Dosage: 500 mg, bid
  5. METOPROLOL [Concomitant]
     Dosage: 50 mg, bid
  6. SPIRONOLACTONE/HYDROCHLOROTHIAZIDE [Concomitant]
     Dosage: UNK, qd

REACTIONS (7)
  - Contusion [Not Recovered/Not Resolved]
  - Influenza like illness [Recovered/Resolved]
  - Nasopharyngitis [Not Recovered/Not Resolved]
  - Livedo reticularis [Not Recovered/Not Resolved]
  - Alopecia [Recovered/Resolved]
  - Oedema peripheral [Not Recovered/Not Resolved]
  - Haematochezia [Recovered/Resolved]
